FAERS Safety Report 23736042 (Version 1)
Quarter: 2024Q2

REPORT INFORMATION
  Report Type: Spontaneous
  Country: IT (occurrence: IT)
  Receive Date: 20240412
  Receipt Date: 20240412
  Transmission Date: 20240715
  Serious: Yes (Other)
  Sender: FDA-Public Use
  Company Number: IT-OTSUKA-2024_010360

PATIENT
  Age: 70 Year
  Sex: Male

DRUGS (8)
  1. BUSULFAN [Suspect]
     Active Substance: BUSULFAN
     Indication: Stem cell transplant
     Dosage: 3.2 MG/KG ON DAYS -3, -2
     Route: 065
  2. BUSULFAN [Suspect]
     Active Substance: BUSULFAN
     Indication: Bone marrow conditioning regimen
  3. FLUDARABINE [Suspect]
     Active Substance: FLUDARABINE PHOSPHATE
     Indication: Stem cell transplant
     Dosage: 50 MG/M2 ; DAYS -4, -3, -2
     Route: 065
  4. FLUDARABINE [Suspect]
     Active Substance: FLUDARABINE PHOSPHATE
     Indication: Bone marrow conditioning regimen
  5. THIOTEPA [Suspect]
     Active Substance: THIOTEPA
     Indication: Stem cell transplant
     Dosage: 5 MG/KG DAYS -5
     Route: 065
  6. THIOTEPA [Suspect]
     Active Substance: THIOTEPA
     Indication: Bone marrow conditioning regimen
  7. CYCLOPHOSPHAMIDE [Suspect]
     Active Substance: CYCLOPHOSPHAMIDE
     Indication: Stem cell transplant
     Dosage: UNK
     Route: 065
  8. CYCLOPHOSPHAMIDE [Suspect]
     Active Substance: CYCLOPHOSPHAMIDE
     Indication: Haematological infection

REACTIONS (1)
  - Cytomegalovirus infection reactivation [Unknown]
